FAERS Safety Report 9219341 (Version 2)
Quarter: 2013Q2

REPORT INFORMATION
  Report Type: Spontaneous
  Country: US (occurrence: US)
  Receive Date: 20130409
  Receipt Date: 20130429
  Transmission Date: 20140414
  Serious: Yes (Hospitalization)
  Sender: FDA-Public Use
  Company Number: US-ELI_LILLY_AND_COMPANY-US201303002383

PATIENT
  Sex: Male

DRUGS (21)
  1. FORTEO [Suspect]
     Indication: OSTEOPOROSIS
     Dosage: UNK, QD
  2. LUPRON [Concomitant]
  3. PREDNISONE [Concomitant]
     Dosage: 2 MG, QD
     Route: 048
  4. PREDNISONE [Concomitant]
     Dosage: 4 MG, QD FOR ONE MONTH
     Route: 048
  5. PREDNISONE [Concomitant]
     Dosage: TAPER BY 1MG EVERY 2 TO 3 MONTHS
     Route: 048
  6. PLAQUENIL [Concomitant]
     Dosage: 200 MG, BID
     Route: 048
  7. VITAMIN D [Concomitant]
     Dosage: 2000 U, QD
  8. TUMS                               /00193601/ [Concomitant]
     Dosage: UNK, PRN
  9. KLOR-CON [Concomitant]
     Dosage: 10 MEQ, EACH MORNING
  10. ALPRAZOLAM [Concomitant]
     Indication: ANXIETY
     Dosage: 0.5MG, 1/2 TO 1 TAB PRN
  11. SALSALATE [Concomitant]
     Dosage: 750 MG, EACH MORNING
  12. HYDROCHLOROTHIAZIDE [Concomitant]
     Dosage: 25 MG, EACH MORNING
  13. SIMVASTATIN [Concomitant]
     Dosage: 10 MG, EACH EVENING, HOUR OF SLEEP
     Route: 048
  14. PLAVIX [Concomitant]
     Dosage: 75 MG, EACH MORNING
     Route: 048
  15. CARDURA [Concomitant]
     Dosage: 4 MG, EACH MORNING
  16. LOTREL [Concomitant]
     Dosage: 5-20 MG CAPSULE
  17. PERCOCET                           /00446701/ [Concomitant]
     Dosage: 5-325 MG TAB, 1-2 EVERY 4 TO 6 HOURS PRN
  18. MULTIVITAMIN [Concomitant]
     Dosage: 1 TABLET, EACH MORNING
  19. ASPIRIN [Concomitant]
     Dosage: 81 MG, 3/W
  20. CALCIUM [Concomitant]
     Dosage: 500 MG, EACH MORNING
  21. TYLENOL EXTRA STRENGTH [Concomitant]
     Dosage: 500 MG, 1-2 TABLETS EVERY 4 TO 6 HOURS PRN

REACTIONS (1)
  - Transient ischaemic attack [Unknown]
